FAERS Safety Report 6450728-7 (Version None)
Quarter: 2009Q4

REPORT INFORMATION
  Report Type: 
  Country: None (occurrence: None)
  Receive Date: 20091120
  Receipt Date: 20091120
  Transmission Date: 20100525
  Serious: Yes (Other)
  Sender: FDA-Public Use
  Company Number: None

PATIENT
  Age: 59 Year
  Sex: Male
  Weight: 94.8018 kg

DRUGS (3)
  1. LISTERINE WHITENING JOHNSON + JOHNSON [Suspect]
     Indication: PAROTID DUCT OBSTRUCTION
     Dosage: 15 ML TWICE PER DAY PO
     Route: 048
     Dates: start: 20090717, end: 20090720
  2. LISTERINE WHITENING JOHNSON + JOHNSON [Suspect]
     Indication: PAROTID DUCT OBSTRUCTION
     Dosage: 15 ML TWICE PER DAY PO
     Route: 048
     Dates: start: 20091115, end: 20091118
  3. COLGATE [Concomitant]

REACTIONS (4)
  - PAIN [None]
  - PAROTID DUCT OBSTRUCTION [None]
  - SALIVARY GLAND ENLARGEMENT [None]
  - SWELLING [None]
